FAERS Safety Report 4690142-8 (Version None)
Quarter: 2005Q2

REPORT INFORMATION
  Report Type: 
  Country: None (occurrence: None)
  Receive Date: 20050613
  Receipt Date: 20050531
  Transmission Date: 20051028
  Serious: Yes (Other)
  Sender: FDA-Public Use
  Company Number: 213224

PATIENT
  Age: 59 Year
  Sex: Female

DRUGS (4)
  1. RAPTIVA [Suspect]
     Indication: PSORIASIS
     Dosage: SUBCUTANEOUS
     Route: 058
     Dates: start: 20040809, end: 20050201
  2. SIMVASTATIN [Concomitant]
  3. TACROLIMUS (TACROLIMUS) [Concomitant]
  4. ISONAZID (ISONAZID) [Concomitant]

REACTIONS (4)
  - DISEASE RECURRENCE [None]
  - HEPATITIS CHOLESTATIC [None]
  - PUSTULAR PSORIASIS [None]
  - THERAPEUTIC RESPONSE DECREASED [None]
